FAERS Safety Report 8599437 (Version 1)
Quarter: 2020Q3

REPORT INFORMATION
  Report Type: Report from Study
  Country: JP (occurrence: JP)
  Receive Date: 20120605
  Receipt Date: 20120605
  Transmission Date: 20201104
  Serious: Yes (Hospitalization)
  Sender: FDA-Public Use
  Company Number: JP-ROCHE-1071814

PATIENT
  Sex: Female

DRUGS (20)
  1. FOSFOMYCIN CALCIUM [Concomitant]
     Active Substance: FOSFOMYCIN CALCIUM
     Dates: start: 20110524
  2. BETAMETHASONE. [Concomitant]
     Active Substance: BETAMETHASONE
     Dates: start: 20110524
  3. KETOPROFEN. [Concomitant]
     Active Substance: KETOPROFEN
     Dates: start: 20051203
  4. FLOMOX [CEFCAPENE PIVOXIL HYDROCHLORIDE] [Concomitant]
     Active Substance: CEFCAPENE PIVOXIL HYDROCHLORIDE
     Dates: start: 20110525, end: 20110529
  5. PHENYLEPHRINE HYDROCHLORIDE. [Concomitant]
     Active Substance: PHENYLEPHRINE HYDROCHLORIDE
  6. AZULENE [Concomitant]
     Active Substance: AZULENE
     Dates: start: 20091107, end: 20091108
  7. CEFAZOLIN SODIUM. [Concomitant]
     Active Substance: CEFAZOLIN SODIUM
     Dates: start: 20110524
  8. BETAMETHASONE SODIUM PHOSPHATE [Concomitant]
     Active Substance: BETAMETHASONE SODIUM PHOSPHATE
     Dates: start: 20110525, end: 20110730
  9. REBAMIPIDE [Concomitant]
     Active Substance: REBAMIPIDE
     Dates: start: 20110526, end: 20110609
  10. COPEGUS [Suspect]
     Active Substance: RIBAVIRIN
     Indication: HEPATITIS C
     Route: 048
     Dates: start: 20091025, end: 20110211
  11. COPEGUS [Suspect]
     Active Substance: RIBAVIRIN
     Route: 048
  12. POVIDONE?IODINE. [Concomitant]
     Active Substance: POVIDONE-IODINE
     Dates: start: 20110524
  13. DICLOD [Concomitant]
     Active Substance: DICLOFENAC SODIUM
     Dates: start: 20110526, end: 20110730
  14. BROTIZOLAM [Concomitant]
     Active Substance: BROTIZOLAM
     Dates: start: 20050730
  15. VANIPREVIR. [Suspect]
     Active Substance: VANIPREVIR
     Indication: HEPATITIS C
     Dates: start: 20090926
  16. PHENYLEPHRINE HYDROCHLORIDE\TROPICAMIDE [Concomitant]
     Active Substance: PHENYLEPHRINE HYDROCHLORIDE\TROPICAMIDE
     Dates: start: 20090919, end: 20091024
  17. LOXONIN [Concomitant]
     Active Substance: LOXOPROFEN SODIUM
     Dates: start: 20110526, end: 20110609
  18. PEGASYS [Suspect]
     Active Substance: PEGINTERFERON ALFA-2A
     Indication: HEPATITIS C
     Route: 058
     Dates: start: 20091030
  19. DEXTROSE. [Concomitant]
     Active Substance: DEXTROSE
  20. LIDOCAINE. [Concomitant]
     Active Substance: LIDOCAINE
     Dates: start: 20110524

REACTIONS (1)
  - Cataract [Recovered/Resolved]

NARRATIVE: CASE EVENT DATE: 20110409
